FAERS Safety Report 21495268 (Version 2)
Quarter: 2023Q1

REPORT INFORMATION
  Report Type: Report from Study
  Country: US (occurrence: US)
  Receive Date: 20221022
  Receipt Date: 20230317
  Transmission Date: 20230417
  Serious: No
  Sender: FDA-Public Use
  Company Number: US-ABBVIE-4166959

PATIENT
  Sex: Female

DRUGS (2)
  1. VENCLEXTA [Suspect]
     Active Substance: VENETOCLAX
     Indication: Acute myeloid leukaemia (in remission)
     Dosage: TAKE 1 TABLET BY MOUTH DAILY FOR 14 DAYS ON THEN 14 DAYS OFF?FORM STRENGTH UNITS: 100 MILLIGRAM
     Route: 048
  2. VENCLEXTA [Suspect]
     Active Substance: VENETOCLAX
     Indication: Acute myeloid leukaemia (in remission)
     Dosage: TAKE 1 TABLET BY MOUTH DAILY ON DAYS 1-7 OF EACH 28 DAY CYCLE?FORM STRENGTH UNITS: 50 MILLIGRAM
     Route: 048

REACTIONS (1)
  - Off label use [Unknown]
